FAERS Safety Report 9376949 (Version 1)
Quarter: 2013Q2

REPORT INFORMATION
  Report Type: Spontaneous
  Country: US (occurrence: None)
  Receive Date: 20130628
  Receipt Date: 20130628
  Transmission Date: 20140414
  Serious: Yes (Other)
  Sender: FDA-Public Use
  Company Number: None

PATIENT
  Age: 44 Year
  Sex: Female

DRUGS (1)
  1. TECFIDERA [Suspect]
     Indication: MULTIPLE SCLEROSIS
     Dosage: 120MG BID ORAL
     Route: 048
     Dates: start: 20130626, end: 20130626

REACTIONS (4)
  - Erythema [None]
  - Pruritus [None]
  - Local swelling [None]
  - Swelling face [None]
